FAERS Safety Report 13051928 (Version 2)
Quarter: 2017Q1

REPORT INFORMATION
  Report Type: Report from Study
  Country: DE (occurrence: DE)
  Receive Date: 20161221
  Receipt Date: 20170111
  Transmission Date: 20170428
  Serious: Yes (Death, Hospitalization, Other)
  Sender: FDA-Public Use
  Company Number: DE-GILEAD-2016-0249975

PATIENT

DRUGS (2)
  1. RITUXIMAB [Concomitant]
     Active Substance: RITUXIMAB
     Dosage: UNK
     Dates: start: 201401
  2. IDELALISIB [Suspect]
     Active Substance: IDELALISIB
     Indication: B-CELL LYMPHOMA
     Dosage: 150 MG, UNK
     Route: 065
     Dates: start: 201412

REACTIONS (5)
  - Death [Fatal]
  - Gastrointestinal neoplasm [Unknown]
  - Oral neoplasm [Unknown]
  - Pancreatic neoplasm [Unknown]
  - Breast cancer [Unknown]

NARRATIVE: CASE EVENT DATE: 201503
